FAERS Safety Report 6213678-7 (Version None)
Quarter: 2009Q2

REPORT INFORMATION
  Report Type: 
  Country: None (occurrence: None)
  Receive Date: 20090603
  Receipt Date: 20090527
  Transmission Date: 20091009
  Serious: Yes (Hospitalization)
  Sender: FDA-Public Use
  Company Number: US-WATSON-2009-03822

PATIENT
  Age: 28 Year
  Sex: Female

DRUGS (1)
  1. LEVORA (UNKNOWN) (WATSON LABORATORIES) [Suspect]
     Indication: CONTRACEPTION
     Dosage: 4 TABLETS, SINGLE
     Route: 048

REACTIONS (1)
  - TOXIC EPIDERMAL NECROLYSIS [None]
